FAERS Safety Report 9846768 (Version 2)
Quarter: 2014Q1

REPORT INFORMATION
  Report Type: Spontaneous
  Country: US (occurrence: US)
  Receive Date: 20140127
  Receipt Date: 20140226
  Transmission Date: 20141002
  Serious: Yes (Hospitalization)
  Sender: FDA-Public Use
  Company Number: US-B.I. PHARMACEUTICALS,INC./RIDGEFIELD-2014-BI-02840BP

PATIENT
  Age: 74 Year
  Sex: Male

DRUGS (2)
  1. AGGRENOX [Suspect]
     Indication: PRODUCT USED FOR UNKNOWN INDICATION
     Dosage: DOSE PER APPLICATION:  25/200MG; DAILY DOSE: 50/400MG
     Route: 048
     Dates: start: 2012, end: 201312
  2. AGGRENOX [Suspect]
     Dosage: ST: 25200MG;DD:50/400MG
     Route: 048
     Dates: start: 201401

REACTIONS (1)
  - Cardiac failure congestive [Recovered/Resolved]
